FAERS Safety Report 7506810-6 (Version None)
Quarter: 2011Q2

REPORT INFORMATION
  Report Type: 
  Country: None (occurrence: None)
  Receive Date: 20110526
  Receipt Date: 20110519
  Transmission Date: 20111010
  Serious: Yes (Other)
  Sender: FDA-Public Use
  Company Number: A0926449A

PATIENT
  Age: 73 Year
  Sex: Female

DRUGS (7)
  1. PROMACTA [Suspect]
     Indication: IDIOPATHIC THROMBOCYTOPENIC PURPURA
     Dosage: 75MG PER DAY
     Route: 048
     Dates: start: 20100113
  2. COLACE [Concomitant]
     Dosage: 400MG PER DAY
     Route: 048
  3. ZOCOR [Concomitant]
     Dosage: 40MG AT NIGHT
     Route: 048
  4. VITAMIN D [Concomitant]
     Dosage: 1000UNIT PER DAY
     Route: 048
  5. CENTRUM SILVER [Concomitant]
     Dosage: 1TAB PER DAY
     Route: 048
  6. CALCIUM CARBONATE + MAGNESIUM CARBONATE [Concomitant]
     Dosage: 2TAB PER DAY
     Route: 048
  7. TENORMIN [Concomitant]
     Dosage: 25MG PER DAY
     Route: 048

REACTIONS (4)
  - BONE MARROW PLASMACYTE COUNT INCREASED [None]
  - MULTIPLE MYELOMA [None]
  - BONE MARROW RETICULIN FIBROSIS [None]
  - FATIGUE [None]
